FAERS Safety Report 5852849 (Version 5)
Quarter: 2020Q3

REPORT INFORMATION
  Report Type: Report from Study
  Country: AU (occurrence: AU)
  Receive Date: 20050805
  Receipt Date: 20060413
  Transmission Date: 20201104
  Serious: Yes (Death, Hospitalization)
  Sender: FDA-Public Use
  Company Number: AU-JNJFOC-20050700453

PATIENT
  Age: 70 Year
  Sex: Female
  Weight: 56 kg

DRUGS (6)
  1. VELCADE [Suspect]
     Active Substance: BORTEZOMIB
     Indication: PLASMA CELL MYELOMA
     Dosage: 1.3 MG/M2 (DAY 1, 4, 8, AND 11) EVERY 21 DAYS
     Route: 042
  2. ZOMETA [Concomitant]
     Active Substance: ZOLEDRONIC ACID
     Indication: PROPHYLAXIS
     Route: 042
  3. NAVOBAN [Concomitant]
     Active Substance: TROPISETRON HYDROCHLORIDE
     Indication: ANTIEMETIC SUPPORTIVE CARE
     Route: 042
  4. DOXIL [Suspect]
     Active Substance: DOXORUBICIN HYDROCHLORIDE
     Route: 042
  5. DOXIL [Suspect]
     Active Substance: DOXORUBICIN HYDROCHLORIDE
     Indication: PLASMA CELL MYELOMA
     Route: 042
  6. METOCLOPRAMIDE HYDROCHLORIDE. [Concomitant]
     Active Substance: METOCLOPRAMIDE HYDROCHLORIDE
     Indication: ANTIEMETIC SUPPORTIVE CARE
     Route: 042

REACTIONS (29)
  - Pulmonary hypertension [Recovered/Resolved]
  - Electrocardiogram T wave inversion [None]
  - Dilatation ventricular [None]
  - Ventricular dysfunction [None]
  - Pleural effusion [None]
  - Urinary tract infection [None]
  - Platelet count decreased [None]
  - Nausea [None]
  - Blood potassium increased [None]
  - White blood cell count decreased [None]
  - Diarrhoea [None]
  - Troponin T increased [None]
  - Tricuspid valve incompetence [None]
  - Blood bicarbonate decreased [None]
  - Blood calcium decreased [None]
  - Confusional state [None]
  - Dilatation atrial [None]
  - Atelectasis [None]
  - Blood albumin decreased [None]
  - Protein total increased [None]
  - Rhabdomyolysis [None]
  - Haemoglobin decreased [None]
  - Blood chloride increased [None]
  - Blood magnesium increased [None]
  - Blood sodium decreased [None]
  - Hepatomegaly [None]
  - Pulmonary vasculitis [None]
  - Chest pain [None]
  - Renal impairment [None]

NARRATIVE: CASE EVENT DATE: 20050701
